FAERS Safety Report 7832963-6 (Version None)
Quarter: 2011Q4

REPORT INFORMATION
  Report Type: 
  Country: None (occurrence: None)
  Receive Date: 20111019
  Receipt Date: 20111004
  Transmission Date: 20120403
  Serious: Yes (Hospitalization)
  Sender: FDA-Public Use
  Company Number: CLIN10010

PATIENT
  Age: 23 Year
  Sex: Female
  Weight: 55.4 kg

DRUGS (2)
  1. ASACOL [Suspect]
     Dosage: 800 MG. P.O. ONCE
     Route: 048
     Dates: start: 20110906, end: 20110926
  2. MESALAMINE [Suspect]
     Dosage: 800MG. P.O. ONCE
     Route: 048
     Dates: start: 20110916

REACTIONS (2)
  - DERMATITIS [None]
  - TYPE IV HYPERSENSITIVITY REACTION [None]
